FAERS Safety Report 6277781-8 (Version None)
Quarter: 2009Q3

REPORT INFORMATION
  Report Type: 
  Country: None (occurrence: None)
  Receive Date: 20090720
  Receipt Date: 20090708
  Transmission Date: 20100115
  Serious: Yes (Hospitalization)
  Sender: FDA-Public Use
  Company Number: GXKR2009CH07842

PATIENT
  Age: 78 Year
  Sex: Female

DRUGS (2)
  1. CLARITHROMYCIN [Suspect]
     Dosage: 500 MG, BID, ORAL
     Route: 048
     Dates: start: 20090413, end: 20090428
  2. DIGOXIN [Suspect]
     Indication: CARDIAC FAILURE
     Dosage: 0.25MG, BID, ORAL
     Route: 048
     Dates: start: 20090413, end: 20090428

REACTIONS (4)
  - CONFUSIONAL STATE [None]
  - DRUG LEVEL INCREASED [None]
  - HALLUCINATION [None]
  - XANTHOPSIA [None]
